FAERS Safety Report 21690203 (Version 1)
Quarter: 2022Q4

REPORT INFORMATION
  Report Type: Spontaneous
  Country: BE (occurrence: BE)
  Receive Date: 20221206
  Receipt Date: 20221206
  Transmission Date: 20230112
  Serious: Yes (Other)
  Sender: FDA-Public Use
  Company Number: BE-BAUSCHBL-2022BNL002417

PATIENT
  Age: 69 Year
  Sex: Female

DRUGS (18)
  1. DEXAMETHASONE [Suspect]
     Active Substance: DEXAMETHASONE
     Indication: Product used for unknown indication
     Dosage: ONCE DAILY
     Route: 065
  2. DEXAMETHASONE [Suspect]
     Active Substance: DEXAMETHASONE
     Dosage: ONCE DAILY
     Route: 065
  3. ATROPINE [Suspect]
     Active Substance: ATROPINE
     Indication: Iris adhesions
     Route: 065
  4. ATROPINE [Suspect]
     Active Substance: ATROPINE
     Indication: Prophylaxis
  5. ACYCLOVIR [Concomitant]
     Active Substance: ACYCLOVIR
     Indication: Product used for unknown indication
     Dosage: DAILY
     Route: 048
  6. ACYCLOVIR [Concomitant]
     Active Substance: ACYCLOVIR
     Indication: Antiviral treatment
     Dosage: DAILY
     Route: 048
  7. ACYCLOVIR [Concomitant]
     Active Substance: ACYCLOVIR
     Dosage: DAILY
     Route: 048
  8. DOXYCYCLINE [Concomitant]
     Active Substance: DOXYCYCLINE
     Indication: Product used for unknown indication
     Dosage: DAILY
     Route: 048
  9. DOXYCYCLINE [Concomitant]
     Active Substance: DOXYCYCLINE
     Dosage: DAILY
     Route: 048
  10. OFLOXACIN [Concomitant]
     Active Substance: OFLOXACIN
     Indication: Product used for unknown indication
     Dosage: DAILY
     Route: 061
  11. OFLOXACIN [Concomitant]
     Active Substance: OFLOXACIN
     Dosage: DAILY
     Route: 048
  12. OFLOXACIN [Concomitant]
     Active Substance: OFLOXACIN
     Dosage: DAILY
     Route: 061
  13. GANCICLOVIR [Concomitant]
     Active Substance: GANCICLOVIR
     Indication: Herpes ophthalmic
     Route: 065
  14. GANCICLOVIR [Concomitant]
     Active Substance: GANCICLOVIR
     Dosage: DAILY
     Route: 048
  15. GANCICLOVIR [Concomitant]
     Active Substance: GANCICLOVIR
     Dosage: DAILY
     Route: 061
  16. DORZOLAMIDE\TIMOLOL [Concomitant]
     Active Substance: DORZOLAMIDE\TIMOLOL
     Indication: Herpes ophthalmic
     Route: 061
  17. DORZOLAMIDE\TIMOLOL [Concomitant]
     Active Substance: DORZOLAMIDE\TIMOLOL
     Dosage: DAILY
     Route: 048
  18. DORZOLAMIDE\TIMOLOL [Concomitant]
     Active Substance: DORZOLAMIDE\TIMOLOL
     Dosage: DAILY
     Route: 061

REACTIONS (2)
  - Keratitis fungal [Recovered/Resolved]
  - Therapy non-responder [Unknown]
